FAERS Safety Report 14807610 (Version 3)
Quarter: 2018Q2

REPORT INFORMATION
  Report Type: Spontaneous
  Country: US (occurrence: US)
  Receive Date: 20180425
  Receipt Date: 20180604
  Transmission Date: 20180711
  Serious: No
  Sender: FDA-Public Use
  Company Number: US-GLAXOSMITHKLINE-US2018069015

PATIENT
  Sex: Female

DRUGS (6)
  1. ADVAIR DISKUS [Suspect]
     Active Substance: FLUTICASONE PROPIONATE\SALMETEROL XINAFOATE
     Dosage: UNK
  2. CALCIUM [Concomitant]
     Active Substance: CALCIUM
  3. SINGULAIR [Concomitant]
     Active Substance: MONTELUKAST SODIUM
  4. ZYRTEC [Concomitant]
     Active Substance: CETIRIZINE HYDROCHLORIDE
  5. ADVAIR DISKUS [Suspect]
     Active Substance: FLUTICASONE PROPIONATE\SALMETEROL XINAFOATE
     Indication: ASTHMA
     Dosage: 1 PUFF(S), 1D
     Route: 055
     Dates: start: 2002
  6. ALBUTEROL INHALER [Concomitant]
     Active Substance: ALBUTEROL

REACTIONS (8)
  - Drug effect decreased [Unknown]
  - Underdose [Unknown]
  - Drug ineffective [Unknown]
  - Dyspnoea [Unknown]
  - Feeling jittery [Unknown]
  - Product quality issue [Unknown]
  - Insomnia [Unknown]
  - Malaise [Unknown]
